FAERS Safety Report 17362143 (Version 3)
Quarter: 2020Q1

REPORT INFORMATION
  Report Type: Report from Study
  Country: US (occurrence: US)
  Receive Date: 20200203
  Receipt Date: 20200331
  Transmission Date: 20200409
  Serious: Yes (Hospitalization, Other)
  Sender: FDA-Public Use
  Company Number: US-EISAI MEDICAL RESEARCH-EC-2019-063115

PATIENT
  Age: 63 Year
  Sex: Male
  Weight: 111 kg

DRUGS (3)
  1. LENVIMA [Suspect]
     Active Substance: LENVATINIB
     Route: 048
     Dates: start: 201912, end: 202003
  2. LENVIMA [Suspect]
     Active Substance: LENVATINIB
     Route: 048
     Dates: start: 202003
  3. LENVIMA [Suspect]
     Active Substance: LENVATINIB
     Indication: THYROID CANCER
     Route: 048
     Dates: start: 20190930, end: 201911

REACTIONS (18)
  - Septic shock [Recovered/Resolved]
  - Thrombosis [Not Recovered/Not Resolved]
  - Pulmonary embolism [Not Recovered/Not Resolved]
  - Fall [Recovered/Resolved]
  - Decreased appetite [Recovering/Resolving]
  - Headache [Not Recovered/Not Resolved]
  - Dyspnoea [Not Recovered/Not Resolved]
  - Hypotension [Recovered/Resolved]
  - Monoplegia [Not Recovered/Not Resolved]
  - Fatigue [Not Recovered/Not Resolved]
  - Diarrhoea [Recovering/Resolving]
  - Skin ulcer [Not Recovered/Not Resolved]
  - Dehydration [Recovered/Resolved]
  - Hypertension [Not Recovered/Not Resolved]
  - Vertigo [Not Recovered/Not Resolved]
  - Malaise [Not Recovered/Not Resolved]
  - Stomatitis [Not Recovered/Not Resolved]
  - Dizziness [Recovered/Resolved]

NARRATIVE: CASE EVENT DATE: 201909
